FAERS Safety Report 4319229-6 (Version None)
Quarter: 2004Q1

REPORT INFORMATION
  Report Type: 
  Country: None (occurrence: None)
  Receive Date: 20040316
  Receipt Date: 20040303
  Transmission Date: 20041129
  Serious: Yes (Congenital Anomaly)
  Sender: FDA-Public Use
  Company Number: 03P-167-0231243

PATIENT
  Age: 1 Day
  Sex: Female

DRUGS (2)
  1. EPILIM     (SODIUM VALPROATE) [Suspect]
     Route: 064
  2. VIGABATRIN [Suspect]
     Route: 064

REACTIONS (28)
  - ARTHROPATHY [None]
  - CONGENITAL ANOMALY [None]
  - CONGENITAL ATRIAL SEPTAL DEFECT [None]
  - CONGENITAL NOSE MALFORMATION [None]
  - CONGENITAL VENTRICULAR SEPTAL DEFECT [None]
  - DEVELOPMENTAL DELAY [None]
  - DYSPNOEA [None]
  - FACIAL DYSMORPHISM [None]
  - FEEDING DISORDER [None]
  - FLAT FEET [None]
  - FOETAL DISTRESS SYNDROME [None]
  - FOETAL VALPROATE SYNDROME [None]
  - HAEMANGIOMA CONGENITAL [None]
  - HEARING IMPAIRED [None]
  - HYPOTONIA [None]
  - ILLITERACY [None]
  - LEARNING DISORDER [None]
  - LIMB REDUCTION DEFECT [None]
  - LOW SET EARS [None]
  - MATERNAL DRUGS AFFECTING FOETUS [None]
  - MEMORY IMPAIRMENT [None]
  - MIDDLE EAR EFFUSION [None]
  - OTITIS MEDIA [None]
  - SKULL MALFORMATION [None]
  - SPEECH DISORDER [None]
  - SPEECH DISORDER DEVELOPMENTAL [None]
  - SUPERNUMERARY NIPPLE [None]
  - TACHYPNOEA [None]
